FAERS Safety Report 8805382 (Version 2)
Quarter: 2012Q4

REPORT INFORMATION
  Report Type: 
  Country: US (occurrence: US)
  Receive Date: 20120924
  Receipt Date: 20121005
  Transmission Date: 20130627
  Serious: Yes (Hospitalization)
  Sender: FDA-Public Use
  Company Number: US-PFIZER INC-2012234604

PATIENT

DRUGS (2)
  1. ADVIL [Suspect]
     Indication: PRODUCT USED FOR UNKNOWN INDICATION
     Dosage: UNK
  2. XARELTO [Suspect]
     Indication: SURGERY
     Dosage: UNK
     Route: 048
     Dates: start: 2012

REACTIONS (1)
  - Gastrointestinal haemorrhage [Unknown]
